FAERS Safety Report 23475576 (Version 1)
Quarter: 2024Q1

REPORT INFORMATION
  Report Type: Report from Study
  Country: US (occurrence: US)
  Receive Date: 20240204
  Receipt Date: 20240204
  Transmission Date: 20240410
  Serious: No
  Sender: FDA-Public Use
  Company Number: US-EXELIXIS-CABO-23060207

PATIENT
  Sex: Male

DRUGS (1)
  1. CABOMETYX [Suspect]
     Active Substance: CABOZANTINIB S-MALATE
     Indication: Renal cancer
     Dosage: 40 MG, QD (TAKE 2 TABLETS OF 20 MG ONCE)
     Route: 048
     Dates: start: 20221206

REACTIONS (4)
  - Blood urine present [Unknown]
  - Depression [Unknown]
  - Decreased appetite [Unknown]
  - Nausea [Unknown]
